FAERS Safety Report 8303545-7 (Version None)
Quarter: 2012Q2

REPORT INFORMATION
  Report Type: 
  Country: None (occurrence: None)
  Receive Date: 20120423
  Receipt Date: 20120417
  Transmission Date: 20120825
  Serious: Yes (Other)
  Sender: FDA-Public Use
  Company Number: BR-PFIZER INC-2012096216

PATIENT
  Age: 70 Year
  Sex: Female

DRUGS (5)
  1. CALCORT [Concomitant]
     Indication: PAIN
     Dosage: UNK
  2. SINGULAIR [Concomitant]
     Dosage: UNK
  3. LYRICA [Suspect]
     Indication: GALLBLADDER PAIN
     Dosage: UNSPECIFIED DOSAGE, 2X/DAY
     Route: 048
     Dates: start: 20120410
  4. PANTOPRAZOLE [Concomitant]
     Indication: PAIN
     Dosage: UNK
  5. FLUTICASONE PROPIONATE/SALMETEROL [Concomitant]
     Indication: PAIN
     Dosage: UNK

REACTIONS (2)
  - GALLBLADDER DISORDER [None]
  - PAIN [None]
